FAERS Safety Report 7008781-8 (Version None)
Quarter: 2010Q3

REPORT INFORMATION
  Report Type: 
  Country: None (occurrence: None)
  Receive Date: 20100921
  Receipt Date: 20100908
  Transmission Date: 20110219
  Serious: Yes (Other)
  Sender: FDA-Public Use
  Company Number: 2010-3096

PATIENT
  Age: 60 Year
  Sex: Female

DRUGS (5)
  1. AZZALURE (BOTULINUM TOXIN TYPE A) (BOTULINUM TOXIN TYPE A) [Suspect]
     Indication: OFF LABEL USE
     Dosage: NOT REPORTED, SINGLE CYCLE, INTRAMUSCULAR
     Route: 030
     Dates: start: 20100401, end: 20100401
  2. AZZALURE (BOTULINUM TOXIN TYPE A) (BOTULINUM TOXIN TYPE A) [Suspect]
     Indication: SKIN WRINKLING
     Dosage: NOT REPORTED, SINGLE CYCLE, INTRAMUSCULAR
     Route: 030
     Dates: start: 20100401, end: 20100401
  3. PRASTERONE [Concomitant]
  4. VITAMINS (VITAMINS NOS) [Concomitant]
  5. OLIGOELEMENTS (MINERALS NOS) [Concomitant]

REACTIONS (3)
  - ANAEMIA [None]
  - LEUKOPENIA [None]
  - THROMBOCYTOPENIA [None]
